FAERS Safety Report 19803808 (Version 1)
Quarter: 2021Q3

REPORT INFORMATION
  Report Type: Report from Study
  Country: US (occurrence: US)
  Receive Date: 20210908
  Receipt Date: 20210908
  Transmission Date: 20211014
  Serious: Yes (Other)
  Sender: FDA-Public Use
  Company Number: US-ASTELLAS-2021US033382

PATIENT
  Age: 18 Year
  Sex: Female

DRUGS (2)
  1. ASP2215 [Suspect]
     Active Substance: GILTERITINIB
     Indication: ACUTE MYELOID LEUKAEMIA
     Dosage: UNK UNK, UNKNOWN FREQ.
     Route: 065
  2. ASP2215 [Suspect]
     Active Substance: GILTERITINIB
     Dosage: UNK UNK, UNKNOWN FREQ. (LOWER DOSE)
     Route: 065

REACTIONS (4)
  - Thrombocytopenia [Recovered/Resolved]
  - Haematemesis [Unknown]
  - Haematochezia [Unknown]
  - Gastrointestinal haemorrhage [Recovered/Resolved]
